FAERS Safety Report 21523105 (Version 1)
Quarter: 2022Q4

REPORT INFORMATION
  Report Type: Report from Study
  Country: US (occurrence: US)
  Receive Date: 20221029
  Receipt Date: 20221029
  Transmission Date: 20230112
  Serious: Yes (Other)
  Sender: FDA-Public Use
  Company Number: US-ABBVIE-22K-163-4437464-00

PATIENT
  Age: 32 Year
  Sex: Male

DRUGS (1)
  1. HUMIRA [Suspect]
     Active Substance: ADALIMUMAB
     Indication: Psoriatic arthropathy
     Dosage: FORM STRENGTH: 40, CITRATE FREE
     Route: 058
     Dates: end: 2022

REACTIONS (1)
  - Hip surgery [Recovered/Resolved]

NARRATIVE: CASE EVENT DATE: 20220612
